FAERS Safety Report 12349540 (Version 1)
Quarter: 2016Q2

REPORT INFORMATION
  Report Type: Spontaneous
  Country: GB (occurrence: GB)
  Receive Date: 20160510
  Receipt Date: 20160510
  Transmission Date: 20160815
  Serious: Yes (Hospitalization)
  Sender: FDA-Public Use
  Company Number: GB-ASTRAZENECA-2016SE48015

PATIENT
  Age: 40 Year
  Sex: Female
  Weight: 54 kg

DRUGS (26)
  1. DORNASE ALFA [Concomitant]
     Active Substance: DORNASE ALFA
  2. OMEPRAZOLE. [Concomitant]
     Active Substance: OMEPRAZOLE
  3. PREDNISOLONE. [Concomitant]
     Active Substance: PREDNISOLONE
  4. LORAZEPAM. [Concomitant]
     Active Substance: LORAZEPAM
  5. CETIRIZINE [Concomitant]
     Active Substance: CETIRIZINE HYDROCHLORIDE
  6. CHLORHEXIDINE [Concomitant]
     Active Substance: CHLORHEXIDINE
  7. COLISTIMETHATE SODIUM. [Concomitant]
     Active Substance: COLISTIMETHATE SODIUM
  8. NEBIVOLOL. [Concomitant]
     Active Substance: NEBIVOLOL
  9. NOVORAPID [Concomitant]
     Active Substance: INSULIN ASPART
  10. SALBUTAMOL [Concomitant]
     Active Substance: ALBUTEROL
  11. IVACAFTOR [Suspect]
     Active Substance: IVACAFTOR
     Indication: CYSTIC FIBROSIS
     Route: 048
     Dates: start: 20160223, end: 20160404
  12. ACETYLCYSTEINE. [Concomitant]
     Active Substance: ACETYLCYSTEINE
  13. CONCENTRATED VITAMIN A AND D SOLUTION [Concomitant]
  14. LEVEMIR [Concomitant]
     Active Substance: INSULIN DETEMIR
  15. AZITHROMYCIN ANHYDROUS. [Concomitant]
     Active Substance: AZITHROMYCIN ANHYDROUS
  16. MONTELUKAST [Concomitant]
     Active Substance: MONTELUKAST SODIUM
  17. MEROPENEM. [Suspect]
     Active Substance: MEROPENEM
     Indication: ANTIBIOTIC THERAPY
     Route: 042
  18. TIOTROPIUM [Concomitant]
     Active Substance: TIOTROPIUM
  19. VITAMIN E SUBSTANCES [Concomitant]
  20. CREON [Concomitant]
     Active Substance: PANCRELIPASE AMYLASE\PANCRELIPASE LIPASE\PANCRELIPASE PROTEASE
  21. OLANZAPINE. [Concomitant]
     Active Substance: OLANZAPINE
  22. FLUCLOXACILLIN [Concomitant]
     Active Substance: FLUCLOXACILLIN
  23. HUMULIN S [Concomitant]
  24. MEGESTROL ACETATE. [Concomitant]
     Active Substance: MEGESTROL ACETATE
  25. SERETIDE [Concomitant]
     Active Substance: FLUTICASONE PROPIONATE\SALMETEROL XINAFOATE
  26. FERROUS FUMARATE [Concomitant]
     Active Substance: FERROUS FUMARATE

REACTIONS (9)
  - Vomiting [Unknown]
  - Dyspnoea [Recovered/Resolved]
  - Abnormal loss of weight [Unknown]
  - Malaise [Unknown]
  - Sputum increased [Unknown]
  - Nausea [Recovered/Resolved]
  - Decreased appetite [Unknown]
  - Fatigue [Unknown]
  - Pyrexia [Unknown]
